FAERS Safety Report 4686451-9 (Version None)
Quarter: 2005Q2

REPORT INFORMATION
  Report Type: 
  Country: None (occurrence: None)
  Receive Date: 20050606
  Receipt Date: 20050520
  Transmission Date: 20051028
  Serious: Yes (Life-Threatening)
  Sender: FDA-Public Use
  Company Number: 200511616GDS

PATIENT
  Age: 71 Year
  Sex: Female

DRUGS (3)
  1. AVELOX [Suspect]
     Indication: CELLULITIS
     Dosage: INTRAVENOUS
     Route: 042
  2. AVELOX [Suspect]
     Indication: CELLULITIS
     Dosage: ORAL
     Route: 048
  3. WARFARIN SODIUM [Suspect]
     Indication: ATRIAL FIBRILLATION

REACTIONS (8)
  - ACUTE ABDOMEN [None]
  - DRUG INTERACTION [None]
  - HAEMOGLOBIN DECREASED [None]
  - INJURY [None]
  - INTERNATIONAL NORMALISED RATIO INCREASED [None]
  - PERITONEAL HAEMATOMA [None]
  - RETROPERITONEAL HAEMATOMA [None]
  - SKELETAL INJURY [None]
